FAERS Safety Report 15309536 (Version 1)
Quarter: 2018Q3

REPORT INFORMATION
  Report Type: Report from Study
  Country: None (occurrence: US)
  Receive Date: 20180823
  Receipt Date: 20180823
  Transmission Date: 20181010
  Serious: Yes (Other)
  Sender: FDA-Public Use
  Company Number: US-ABBVIE-18K-163-2410584-00

PATIENT
  Age: 64 Year
  Sex: Female
  Weight: 65.83 kg

DRUGS (2)
  1. HUMIRA [Suspect]
     Active Substance: ADALIMUMAB
     Route: 058
     Dates: start: 201805
  2. HUMIRA [Suspect]
     Active Substance: ADALIMUMAB
     Indication: RHEUMATOID ARTHRITIS
     Route: 058
     Dates: start: 201712, end: 201804

REACTIONS (3)
  - Pain in extremity [Recovered/Resolved]
  - Cartilage atrophy [Recovered/Resolved]
  - Post procedural swelling [Recovering/Resolving]

NARRATIVE: CASE EVENT DATE: 201712
